FAERS Safety Report 15708300 (Version 1)
Quarter: 2018Q4

REPORT INFORMATION
  Report Type: Spontaneous
  Country: FR (occurrence: FR)
  Receive Date: 20181211
  Receipt Date: 20181211
  Transmission Date: 20190205
  Serious: Yes (Hospitalization)
  Sender: FDA-Public Use
  Company Number: FR-TAKEDA-2018TUS034719

PATIENT
  Age: 66 Year
  Sex: Male
  Weight: 87 kg

DRUGS (3)
  1. RAMIPRIL. [Concomitant]
     Active Substance: RAMIPRIL
     Indication: HYPERTENSION
     Dosage: 5 MG, UNK
     Route: 048
  2. ENTYVIO [Suspect]
     Active Substance: VEDOLIZUMAB
     Indication: PROCTITIS HAEMORRHAGIC
     Dosage: 300 MG, UNK
     Route: 042
  3. CORTANCYL [Suspect]
     Active Substance: PREDNISONE
     Indication: PROCTITIS HAEMORRHAGIC
     Dosage: 5 MG, UNK
     Route: 048

REACTIONS (1)
  - Endocarditis bacterial [Recovering/Resolving]

NARRATIVE: CASE EVENT DATE: 20181110
